FAERS Safety Report 4619474-6 (Version None)
Quarter: 2005Q1

REPORT INFORMATION
  Report Type: 
  Country: None (occurrence: None)
  Receive Date: 20050325
  Receipt Date: 20040601
  Transmission Date: 20050727
  Serious: Yes (Hospitalization)
  Sender: FDA-Public Use
  Company Number: US-JNJFOC-20040601443

PATIENT
  Sex: Male

DRUGS (13)
  1. IMODIUM A-D [Suspect]
     Route: 049
  2. IMODIUM A-D [Suspect]
     Dosage: ^LARGE QUANTITIES^
     Route: 049
  3. ATIVAN [Suspect]
     Indication: DRUG USE FOR UNKNOWN INDICATION
     Dosage: ^CUT THE DOSE OF ATIVAN IN HALF^
  4. IMODIUM A-D [Concomitant]
     Route: 049
  5. BENTYL [Concomitant]
  6. AMBIEN [Concomitant]
  7. HYDROCODONE BITARTRATE [Concomitant]
  8. POTASSIUM CHLORIDE [Concomitant]
  9. PREDNISONE [Concomitant]
  10. INTRAVENOUS FLUIDS [Concomitant]
  11. INTRAVENOUS FLUIDS [Concomitant]
  12. INTRAVENOUS FLUIDS [Concomitant]
  13. INTRAVENOUS FLUIDS [Concomitant]

REACTIONS (1)
  - PSYCHOTIC DISORDER [None]
